FAERS Safety Report 4951800-0 (Version None)
Quarter: 2006Q1

REPORT INFORMATION
  Report Type: 
  Country: None (occurrence: None)
  Receive Date: 20060322
  Receipt Date: 20060322
  Transmission Date: 20060701
  Serious: Yes (Hospitalization)
  Sender: FDA-Public Use
  Company Number: None

PATIENT
  Age: 63 Year
  Sex: Male

DRUGS (3)
  1. BEVACIZUMAB 1252 MG IV EVERY 21 DAYS [Suspect]
     Indication: NON-SMALL CELL LUNG CANCER
     Dosage: 15 MG /KG IV
     Route: 042
     Dates: start: 20050912, end: 20060213
  2. CODEINE SUL TAB [Concomitant]
  3. ALIEVE [Concomitant]

REACTIONS (4)
  - DYSPHASIA [None]
  - HAEMORRHAGIC STROKE [None]
  - PALLOR [None]
  - PERIPHERAL COLDNESS [None]
